FAERS Safety Report 6641552-0 (Version None)
Quarter: 2010Q1

REPORT INFORMATION
  Report Type: 
  Country: None (occurrence: None)
  Receive Date: 20100317
  Receipt Date: 20100317
  Transmission Date: 20100710
  Serious: Yes (Hospitalization, Other)
  Sender: FDA-Public Use
  Company Number: None

PATIENT
  Age: 29 Year
  Sex: Male
  Weight: 80 kg

DRUGS (1)
  1. CITALOPRAM HYDROBROMIDE [Suspect]
     Indication: DEPRESSION
     Dosage: 20 MG DAILY PO OUTPATIENT MED
     Route: 048

REACTIONS (3)
  - NO THERAPEUTIC RESPONSE [None]
  - SEROTONIN SYNDROME [None]
  - SUPRAVENTRICULAR TACHYCARDIA [None]
